FAERS Safety Report 8191118-9 (Version None)
Quarter: 2012Q1

REPORT INFORMATION
  Report Type: 
  Country: None (occurrence: None)
  Receive Date: 20120307
  Receipt Date: 20120125
  Transmission Date: 20120608
  Serious: Yes (Life-Threatening)
  Sender: FDA-Public Use
  Company Number: JP-GLAXOSMITHKLINE-B0781202A

PATIENT
  Sex: Female
  Weight: 69 kg

DRUGS (3)
  1. HYCAMTIN [Suspect]
     Indication: OVARIAN CANCER RECURRENT
     Dosage: 1.7MGM2 PER DAY
     Route: 042
     Dates: start: 20120123, end: 20120127
  2. DECADRON [Concomitant]
     Indication: OVARIAN CANCER RECURRENT
     Dosage: 9.9MG PER DAY
     Route: 042
     Dates: start: 20120123, end: 20120127
  3. KYTRIL [Concomitant]
     Indication: OVARIAN CANCER RECURRENT
     Dosage: 3MG PER DAY
     Route: 042
     Dates: start: 20120123, end: 20120127

REACTIONS (1)
  - BRADYCARDIA [None]
